FAERS Safety Report 22141463 (Version 1)
Quarter: 2023Q1

REPORT INFORMATION
  Report Type: Spontaneous
  Country: US (occurrence: US)
  Receive Date: 20230327
  Receipt Date: 20230327
  Transmission Date: 20230418
  Serious: No
  Sender: FDA-Public Use
  Company Number: US-SA-SAC20230324000300

PATIENT
  Age: 70 Year
  Sex: Male
  Weight: 88.889 kg

DRUGS (15)
  1. DUPIXENT [Suspect]
     Active Substance: DUPILUMAB
     Indication: Dermatitis atopic
     Dosage: 300 MG, QOW
     Route: 058
     Dates: start: 20221214
  2. RINVOQ [Concomitant]
     Active Substance: UPADACITINIB
  3. ADACEL TDAP [Concomitant]
     Active Substance: TETANUS TOXOID, REDUCED DIPHTHERIA TOXOID AND ACELLULAR PERTUSSIS VACCINE ADSORBED, TDAP
  4. EPIPEN [Concomitant]
     Active Substance: EPINEPHRINE
  5. HERBALS\SAW PALMETTO [Concomitant]
     Active Substance: HERBALS\SAW PALMETTO
  6. MONTELUKAST SODIUM [Concomitant]
     Active Substance: MONTELUKAST SODIUM
  7. VITAMIN D3 [Concomitant]
     Active Substance: CHOLECALCIFEROL
  8. TESTOSTERONE [Concomitant]
     Active Substance: TESTOSTERONE
  9. VITAMIN C [Concomitant]
     Active Substance: ASCORBIC ACID
  10. LORATADINE [Concomitant]
     Active Substance: LORATADINE
  11. CLOBETASOL [Concomitant]
     Active Substance: CLOBETASOL
  12. ATORVASTATIN CALCIUM [Concomitant]
     Active Substance: ATORVASTATIN CALCIUM
  13. ALBUTEROL SULFATE [Concomitant]
     Active Substance: ALBUTEROL SULFATE
  14. FEBUXOSTAT [Concomitant]
     Active Substance: FEBUXOSTAT
  15. VITAMINS NOS [Concomitant]
     Active Substance: VITAMINS

REACTIONS (2)
  - Cough [Not Recovered/Not Resolved]
  - Therapeutic product effect decreased [Unknown]

NARRATIVE: CASE EVENT DATE: 20221201
